FAERS Safety Report 6999430-3 (Version None)
Quarter: 2010Q3

REPORT INFORMATION
  Report Type: 
  Country: None (occurrence: None)
  Receive Date: 20100920
  Receipt Date: 20100907
  Transmission Date: 20110219
  Serious: Yes (Hospitalization)
  Sender: FDA-Public Use
  Company Number: PHHO2010RO13517

PATIENT
  Sex: Female

DRUGS (8)
  1. BLINDED NO TREATMENT RECEIVED NOMED [Suspect]
     Indication: CYSTIC FIBROSIS
     Dosage: CODE NOT BROKEN
     Dates: start: 20100811
  2. BLINDED PLACEBO COMP-PLA+ [Suspect]
     Indication: CYSTIC FIBROSIS
     Dosage: CODE NOT BROKEN
     Dates: start: 20100811
  3. BLINDED TOBRAMYCIN INHALATION POWDER C-TIP+DRYPO [Suspect]
     Indication: CYSTIC FIBROSIS
     Dosage: CODE NOT BROKEN
     Dates: start: 20100811
  4. PULMOZYME [Concomitant]
     Dosage: UNK
  5. ACETYLCYSTEINE [Concomitant]
     Dosage: UNK
  6. AZITHROMYCIN [Concomitant]
     Dosage: UNK
  7. CREON [Concomitant]
     Dosage: UNK
  8. ALBUTEROL [Concomitant]
     Indication: BRONCHIAL DISORDER
     Dosage: UNK

REACTIONS (7)
  - COUGH [None]
  - DISEASE PROGRESSION [None]
  - INCREASED UPPER AIRWAY SECRETION [None]
  - LUNG INFECTION [None]
  - PNEUMONIA [None]
  - PSEUDOMONAS INFECTION [None]
  - PYREXIA [None]
